FAERS Safety Report 4564382-2 (Version None)
Quarter: 2005Q1

REPORT INFORMATION
  Report Type: 
  Country: None (occurrence: None)
  Receive Date: 20050128
  Receipt Date: 19980324
  Transmission Date: 20050727
  Serious: Yes (Other)
  Sender: FDA-Public Use
  Company Number: TH-GLAXOSMITHKLINE-B0365907A

PATIENT
  Age: 33 Year
  Sex: Male
  Weight: 52.8 kg

DRUGS (2)
  1. EPIVIR [Suspect]
     Indication: ACQUIRED IMMUNODEFICIENCY SYNDROME
     Dosage: 150MG UNKNOWN
     Route: 065
     Dates: start: 19971007, end: 19980324
  2. ZIDOVUDINE [Concomitant]
     Indication: ACQUIRED IMMUNODEFICIENCY SYNDROME
     Dosage: 300MG TWICE PER DAY
     Route: 048
     Dates: start: 19971007, end: 19980324

REACTIONS (1)
  - LEUKOPENIA [None]
